FAERS Safety Report 7543622-1 (Version None)
Quarter: 2011Q2

REPORT INFORMATION
  Report Type: 
  Country: None (occurrence: None)
  Receive Date: 20110613
  Receipt Date: 20110606
  Transmission Date: 20111010
  Serious: Yes (Life-Threatening, Hospitalization)
  Sender: FDA-Public Use
  Company Number: FR-KINGPHARMUSA00001-K201100684

PATIENT
  Age: 56 Year
  Sex: Female

DRUGS (6)
  1. IRBESARTAN AND HYDROCHLOROTHIAZIDE [Suspect]
     Dosage: 300 MG/12.5, QD
     Route: 048
     Dates: end: 20110423
  2. CRESTOR [Suspect]
     Dosage: 20 MG, BID
     Route: 048
     Dates: end: 20110423
  3. METFORMIN HCL [Suspect]
     Dosage: 1000 MG, TID
     Route: 048
     Dates: end: 20110423
  4. ALTACE [Suspect]
     Dosage: 10 MG, QD
     Route: 048
     Dates: end: 20110423
  5. EZETIMIBE [Suspect]
     Dosage: 10 MG, QD
     Route: 048
     Dates: end: 20110423
  6. LYRICA [Suspect]
     Indication: MYALGIA
     Dosage: 200 MG, BID
     Route: 048
     Dates: end: 20110423

REACTIONS (6)
  - DIABETIC NEPHROPATHY [None]
  - ALTERED STATE OF CONSCIOUSNESS [None]
  - RHABDOMYOLYSIS [None]
  - PAIN IN EXTREMITY [None]
  - RENAL FAILURE ACUTE [None]
  - ACIDOSIS [None]
